FAERS Safety Report 25488276 (Version 2)
Quarter: 2025Q2

REPORT INFORMATION
  Report Type: Spontaneous
  Country: US (occurrence: US)
  Receive Date: 20250627
  Receipt Date: 20250630
  Transmission Date: 20250716
  Serious: No
  Sender: PFIZER
  Company Number: US-PFIZER INC-202500127117

PATIENT
  Age: 33 Year
  Sex: Female

DRUGS (2)
  1. LEVOXYL [Suspect]
     Active Substance: LEVOTHYROXINE SODIUM
  2. LEVOXYL [Suspect]
     Active Substance: LEVOTHYROXINE SODIUM

REACTIONS (1)
  - Diarrhoea [Unknown]

NARRATIVE: CASE EVENT DATE: 20210101
